FAERS Safety Report 5217995-9 (Version None)
Quarter: 2007Q1

REPORT INFORMATION
  Report Type: 
  Country: None (occurrence: None)
  Receive Date: 20070124
  Receipt Date: 20060201
  Transmission Date: 20070707
  Serious: Yes (Hospitalization)
  Sender: FDA-Public Use
  Company Number: US-AMGEN-US159021

PATIENT
  Sex: Female
  Weight: 53.6 kg

DRUGS (6)
  1. EPOGEN [Suspect]
     Indication: DIALYSIS
     Route: 058
     Dates: start: 20040625
  2. ARANESP [Suspect]
     Indication: DIALYSIS
     Dates: start: 20040723, end: 20050601
  3. SENSIPAR [Concomitant]
     Indication: HYPERPARATHYROIDISM SECONDARY
     Route: 048
     Dates: start: 20040101
  4. IRON [Concomitant]
  5. LIPITOR [Concomitant]
  6. PROTONIX [Concomitant]

REACTIONS (3)
  - CONVULSION [None]
  - PERITONITIS [None]
  - THERAPEUTIC RESPONSE DECREASED [None]
